FAERS Safety Report 4731291-5 (Version None)
Quarter: 2005Q3

REPORT INFORMATION
  Report Type: 
  Country: None (occurrence: None)
  Receive Date: 20050728
  Receipt Date: 20050728
  Transmission Date: 20060218
  Serious: Yes (Life-Threatening, Hospitalization)
  Sender: FDA-Public Use
  Company Number: None

PATIENT
  Sex: Male
  Weight: 86.7 kg

DRUGS (8)
  1. IRESSA [Suspect]
     Indication: OESOPHAGEAL CARCINOMA
     Dosage: 250 MG DAILY PO
     Route: 048
     Dates: start: 20050627, end: 20050725
  2. XANAX [Suspect]
     Indication: ANXIETY
     Dosage: 0.25 MG Q6H PO
     Route: 048
  3. PHENERGAN [Suspect]
     Indication: NAUSEA
     Dosage: 12.5 MG Q6H PRN PO
     Route: 048
  4. PROTONIX [Suspect]
     Indication: GASTROOESOPHAGEAL REFLUX DISEASE
     Dosage: 40 MG BID PO
     Route: 048
  5. LEXAPRO [Suspect]
     Indication: ANXIETY
     Dosage: 10 MG DAILY PO
     Route: 048
  6. COLACE [Suspect]
     Indication: CONSTIPATION
     Dosage: 100 MG TID PO
     Route: 048
  7. PERCOCET [Suspect]
     Indication: PAIN
     Dosage: 5 MG Q4H PRN PO
     Route: 048
  8. DURAGESIC-100 [Suspect]
     Indication: PAIN
     Dosage: 50 MCG Q3DAYS DERM
     Route: 062

REACTIONS (7)
  - ABDOMINAL PAIN [None]
  - DEHYDRATION [None]
  - HYPOTENSION [None]
  - NAUSEA [None]
  - OXYGEN SATURATION DECREASED [None]
  - PULMONARY EMBOLISM [None]
  - VOMITING [None]
